FAERS Safety Report 15485173 (Version 1)
Quarter: 2018Q4

REPORT INFORMATION
  Report Type: Spontaneous
  Country: US (occurrence: US)
  Receive Date: 20181010
  Receipt Date: 20181010
  Transmission Date: 20190205
  Serious: No
  Sender: FDA-Public Use
  Company Number: US-ROCHE-2173956

PATIENT
  Sex: Male
  Weight: 97.61 kg

DRUGS (3)
  1. ALECENSA [Suspect]
     Active Substance: ALECTINIB HYDROCHLORIDE
     Indication: LUNG NEOPLASM MALIGNANT
     Dosage: TAKE 4 CAPSULES BY MOUTH; ONGOING: YES
     Route: 048
     Dates: start: 20180223
  2. ALLEGRA [Concomitant]
     Active Substance: FEXOFENADINE HYDROCHLORIDE
     Indication: HYPERSENSITIVITY
     Dosage: ONGOING: UNKNOWN
     Route: 048
     Dates: start: 20180619
  3. LORAZEPAM. [Concomitant]
     Active Substance: LORAZEPAM
     Dosage: ONGOING: UNKNOWN
     Route: 048
     Dates: start: 20180619

REACTIONS (1)
  - Arthritis [Unknown]
